FAERS Safety Report 5752782-4 (Version None)
Quarter: 2008Q2

REPORT INFORMATION
  Report Type: 
  Country: None (occurrence: None)
  Receive Date: 20080529
  Receipt Date: 20080519
  Transmission Date: 20081010
  Serious: Yes (Death, Life-Threatening, Hospitalization)
  Sender: FDA-Public Use
  Company Number: JP-PFIZER INC-2008024891

PATIENT
  Sex: Male
  Weight: 39 kg

DRUGS (24)
  1. ZYVOX [Suspect]
     Indication: PNEUMONIA STAPHYLOCOCCAL
     Dosage: DAILY DOSE:1200MG
     Route: 042
     Dates: start: 20080301, end: 20080312
  2. ZYVOX [Suspect]
  3. PRODIF [Suspect]
     Indication: SYSTEMIC MYCOSIS
     Route: 042
     Dates: start: 20080311, end: 20080316
  4. PRODIF [Suspect]
     Dosage: DAILY DOSE:200MG
     Route: 042
     Dates: start: 20080317, end: 20080319
  5. CEFOPERAZONE W/SULBACTAM [Suspect]
     Indication: PNEUMONIA
     Route: 042
     Dates: start: 20080301, end: 20080306
  6. CEFOPERAZONE W/SULBACTAM [Suspect]
     Indication: SEPSIS
  7. MICAFUNGIN [Suspect]
     Indication: SYSTEMIC MYCOSIS
     Route: 042
     Dates: start: 20080303, end: 20080310
  8. PASIL [Suspect]
     Indication: PNEUMONIA
     Route: 042
     Dates: start: 20080307, end: 20080312
  9. PASIL [Suspect]
     Indication: SEPSIS
  10. FLUMARIN [Concomitant]
  11. VANCOMYCIN HYDROCHLORIDE [Concomitant]
  12. MEROPEN [Concomitant]
  13. MICAFUNGIN [Concomitant]
  14. FESIN [Concomitant]
     Route: 042
     Dates: start: 20080213, end: 20080305
  15. ORGADRONE [Concomitant]
     Route: 042
  16. PREDONINE [Concomitant]
     Route: 048
     Dates: start: 20080101, end: 20080311
  17. FAMOTIDINE [Concomitant]
     Route: 048
  18. MYSLEE [Concomitant]
     Route: 048
  19. DEPAS [Concomitant]
     Route: 048
  20. UNIPHYL [Concomitant]
     Route: 048
     Dates: start: 20071201, end: 20080318
  21. HOKUNALIN [Concomitant]
  22. SOLUTIONS FOR PARENTERAL NUTRITION [Concomitant]
     Dates: start: 20070701, end: 20080318
  23. VITAMINS W/AMINO ACIDS [Concomitant]
     Route: 042
  24. RED BLOOD CELLS [Concomitant]
     Route: 042
     Dates: start: 20080307, end: 20080314

REACTIONS (3)
  - OESOPHAGEAL CARCINOMA RECURRENT [None]
  - PLATELET COUNT DECREASED [None]
  - WHITE BLOOD CELL COUNT DECREASED [None]
